FAERS Safety Report 13329459 (Version 2)
Quarter: 2017Q2

REPORT INFORMATION
  Report Type: Report from Study
  Country: NL (occurrence: NL)
  Receive Date: 20170313
  Receipt Date: 20170427
  Transmission Date: 20170830
  Serious: Yes (Other)
  Sender: FDA-Public Use
  Company Number: NL-BEH-2017078791

PATIENT
  Age: 72 Year
  Sex: Female
  Weight: 92 kg

DRUGS (3)
  1. DESMOPRESSIN [Concomitant]
     Active Substance: DESMOPRESSIN
     Dosage: 0.3 ?G/KG, UNK
     Route: 042
     Dates: start: 20130116, end: 20130116
  2. HAEMOCOMPLETTAN P [Suspect]
     Active Substance: FIBRINOGEN HUMAN
     Indication: PROCEDURAL HAEMORRHAGE
     Dosage: 4 G, TOT
     Route: 042
     Dates: start: 20130116
  3. TRANEXAMIC ACID. [Concomitant]
     Active Substance: TRANEXAMIC ACID
     Indication: PROCOAGULANT THERAPY
     Dosage: 2 G, UNK
     Route: 042
     Dates: start: 20130116, end: 20130116

REACTIONS (6)
  - Hemiparesis [Recovered/Resolved with Sequelae]
  - Fine motor skill dysfunction [Recovered/Resolved with Sequelae]
  - Ischaemic stroke [Recovered/Resolved with Sequelae]
  - Atrial fibrillation [Recovered/Resolved with Sequelae]
  - Postoperative wound infection [Recovered/Resolved]
  - Facial paralysis [Recovered/Resolved with Sequelae]

NARRATIVE: CASE EVENT DATE: 201301
